FAERS Safety Report 10279439 (Version 1)
Quarter: 2014Q3

REPORT INFORMATION
  Report Type: Spontaneous
  Country: US (occurrence: None)
  Receive Date: 20140702
  Receipt Date: 20140702
  Transmission Date: 20150326
  Serious: Yes (Hospitalization)
  Sender: FDA-Public Use
  Company Number: None

PATIENT
  Age: 59 Year
  Sex: Male
  Weight: 141.5 kg

DRUGS (2)
  1. SPIRONOLACTONE. [Concomitant]
     Active Substance: SPIRONOLACTONE
     Indication: CARDIAC FAILURE CONGESTIVE
     Route: 048
     Dates: start: 20120816, end: 20140527
  2. LISINOPRIL. [Suspect]
     Active Substance: LISINOPRIL
     Indication: CARDIAC FAILURE CONGESTIVE
     Route: 048
     Dates: start: 20140227, end: 20140527

REACTIONS (5)
  - Hyperkalaemia [None]
  - Hyperglycaemia [None]
  - Acidosis [None]
  - Electrocardiogram T wave peaked [None]
  - Blood creatinine increased [None]

NARRATIVE: CASE EVENT DATE: 20140527
